FAERS Safety Report 9126786 (Version 1)
Quarter: 2013Q1

REPORT INFORMATION
  Report Type: Spontaneous
  Country: US (occurrence: US)
  Receive Date: 20130228
  Receipt Date: 20130228
  Transmission Date: 20140127
  Serious: No
  Sender: FDA-Public Use
  Company Number: US-BRISTOL-MYERS SQUIBB COMPANY-16619173

PATIENT
  Sex: 0

DRUGS (1)
  1. RECOTHROM [Suspect]
     Dosage: LAST DOSE: 22MAY12?ABOUT 1/2ML
     Route: 042

REACTIONS (1)
  - Drug administration error [Unknown]
